FAERS Safety Report 5522267-9 (Version None)
Quarter: 2007Q4

REPORT INFORMATION
  Report Type: 
  Country: None (occurrence: None)
  Receive Date: 20071120
  Receipt Date: 20071112
  Transmission Date: 20080405
  Serious: Yes (Other)
  Sender: FDA-Public Use
  Company Number: US-ELI_LILLY_AND_COMPANY-US200710006699

PATIENT
  Age: 81 Year
  Sex: Female

DRUGS (1)
  1. FORTEO [Suspect]

REACTIONS (5)
  - ABASIA [None]
  - CARDIAC FAILURE CONGESTIVE [None]
  - FAECAL INCONTINENCE [None]
  - MENTAL IMPAIRMENT [None]
  - URINARY INCONTINENCE [None]
